FAERS Safety Report 6682977-7 (Version None)
Quarter: 2010Q2

REPORT INFORMATION
  Report Type: 
  Country: None (occurrence: None)
  Receive Date: 20100415
  Receipt Date: 20100409
  Transmission Date: 20101027
  Serious: Yes (Death)
  Sender: FDA-Public Use
  Company Number: DE-ROCHE-696925

PATIENT
  Sex: Female
  Weight: 65 kg

DRUGS (4)
  1. BEVACIZUMAB [Suspect]
     Dosage: FORM: VIAL, DOSE LEVEL: 15 MG/KG, LAST DOSE PRIOR TO SAE: 30 MARCH 2010
     Route: 042
     Dates: start: 20100330
  2. TRASTUZUMAB [Suspect]
     Dosage: FORM: VIAL, DOSE LEVEL: 8MG/KG, LAST DOSE PRIOR TO SAE: 30 MARCH 10
     Route: 042
     Dates: start: 20100330
  3. DOCETAXEL [Suspect]
     Dosage: FORM: VIAL, DOSE LEVEL: 75 MG/M2, LAST DOSE PRIOR TO SAE:LAST DOSE PRIOR TO SAE 30 MARCH 2010
     Route: 042
     Dates: start: 20100330
  4. CARBOPLATIN [Suspect]
     Dosage: FORM: VIAL, DOSE LEVEL: 6 AUC, LAST DOSE PRIOR TO SAE 30 MARCH 2010
     Route: 042
     Dates: start: 20100330

REACTIONS (1)
  - FEBRILE NEUTROPENIA [None]
